FAERS Safety Report 4409987-4 (Version None)
Quarter: 2004Q3

REPORT INFORMATION
  Report Type: 
  Country: None (occurrence: None)
  Receive Date: 20040728
  Receipt Date: 20000321
  Transmission Date: 20050211
  Serious: Yes (Other)
  Sender: FDA-Public Use
  Company Number: JP-ROCHE-232000

PATIENT
  Age: 47 Year
  Sex: Female

DRUGS (1)
  1. PERDIPINE [Suspect]
     Indication: HYPERTENSION
     Route: 048

REACTIONS (2)
  - CHRONIC HEPATITIS [None]
  - PLATELET AGGREGATION INHIBITION [None]
